FAERS Safety Report 9393755 (Version 1)
Quarter: 2013Q3

REPORT INFORMATION
  Report Type: Spontaneous
  Country: US (occurrence: US)
  Receive Date: 20130710
  Receipt Date: 20130710
  Transmission Date: 20140515
  Serious: Yes (Hospitalization)
  Sender: FDA-Public Use
  Company Number: US-BAYER-2013-081278

PATIENT
  Age: 77 Year
  Sex: Female
  Weight: 79.37 kg

DRUGS (4)
  1. BAYER GENUINE ASPIRIN ORIGINAL STRENGTH [Suspect]
     Indication: BACK PAIN
     Dosage: 3 DF, ONCE
     Route: 048
     Dates: start: 20130622, end: 20130622
  2. BAYER ASPIRIN REGIMEN ADULT LOW STRENGTH [Concomitant]
     Indication: ISCHAEMIC HEART DISEASE PROPHYLAXIS
  3. METFORMIN [Concomitant]
  4. METOPROLOL [Concomitant]

REACTIONS (2)
  - Epistaxis [Recovered/Resolved]
  - Blood pressure increased [Recovered/Resolved]
